FAERS Safety Report 18705676 (Version 1)
Quarter: 2021Q1

REPORT INFORMATION
  Report Type: Spontaneous
  Country: US (occurrence: US)
  Receive Date: 20210105
  Receipt Date: 20210105
  Transmission Date: 20210419
  Serious: Yes (Other)
  Sender: FDA-Public Use
  Company Number: None

PATIENT
  Age: 71 Year
  Sex: Female

DRUGS (1)
  1. AXICABTAGENE CILOLEUCEL [Suspect]
     Active Substance: AXICABTAGENE CILOLEUCEL
     Indication: DIFFUSE LARGE B-CELL LYMPHOMA REFRACTORY
     Dates: start: 20201012, end: 20201012

REACTIONS (7)
  - Cytokine release syndrome [None]
  - Tachycardia [None]
  - Candida infection [None]
  - Pneumonia [None]
  - Confusional state [None]
  - Bronchopulmonary aspergillosis [None]
  - Hypotension [None]

NARRATIVE: CASE EVENT DATE: 20201016
